FAERS Safety Report 4307811-1 (Version None)
Quarter: 2004Q1

REPORT INFORMATION
  Report Type: 
  Country: None (occurrence: None)
  Receive Date: 20040226
  Receipt Date: 20030616
  Transmission Date: 20041129
  Serious: Yes (Hospitalization)
  Sender: FDA-Public Use
  Company Number: 2003162005US

PATIENT
  Age: 53 Year
  Sex: Female
  Weight: 77.1 kg

DRUGS (2)
  1. CELEBREX [Suspect]
     Indication: BACK INJURY
     Dosage: 100 MG, PRN, ORAL
     Route: 048
     Dates: start: 19990901, end: 20030411
  2. MULTIVITAMINS, COMBINATIONS [Suspect]
     Dosage: SINGLE
     Dates: start: 20021001, end: 20021001

REACTIONS (4)
  - ANAPHYLACTIC SHOCK [None]
  - ASTHENIA [None]
  - DIZZINESS [None]
  - PRURITUS [None]
